FAERS Safety Report 9839883 (Version 5)
Quarter: 2014Q1

REPORT INFORMATION
  Report Type: Report from Study
  Country: CA (occurrence: CA)
  Receive Date: 20140124
  Receipt Date: 20140324
  Transmission Date: 20141002
  Serious: Yes (Other)
  Sender: FDA-Public Use
  Company Number: CA-ROCHE-1321712

PATIENT
  Age: 55 Year
  Sex: Female

DRUGS (9)
  1. AVASTIN [Suspect]
     Indication: GLIOBLASTOMA MULTIFORME
     Route: 042
     Dates: start: 20131204, end: 20140211
  2. DECADRON [Concomitant]
     Route: 065
  3. AVALIDE [Concomitant]
     Route: 065
  4. NORVASC [Concomitant]
     Route: 065
  5. EFFEXOR [Concomitant]
     Route: 065
  6. KEPPRA [Concomitant]
     Route: 065
  7. VIMPAT [Concomitant]
     Route: 065
  8. RANITIDINE [Concomitant]
     Route: 065
  9. COVERSYL [Concomitant]

REACTIONS (12)
  - Aphasia [Not Recovered/Not Resolved]
  - Swelling [Not Recovered/Not Resolved]
  - Scratch [Unknown]
  - Urinary tract infection [Unknown]
  - Weight decreased [Unknown]
  - Cystitis [Recovering/Resolving]
  - Cough [Unknown]
  - Arthralgia [Not Recovered/Not Resolved]
  - Gingival bleeding [Not Recovered/Not Resolved]
  - Chapped lips [Not Recovered/Not Resolved]
  - Malignant neoplasm progression [Not Recovered/Not Resolved]
  - Drug effect decreased [Unknown]
